FAERS Safety Report 4376956-2 (Version None)
Quarter: 2004Q2

REPORT INFORMATION
  Report Type: 
  Country: None (occurrence: None)
  Receive Date: 20040614
  Receipt Date: 20040513
  Transmission Date: 20050107
  Serious: Yes (Other)
  Sender: FDA-Public Use
  Company Number: GB-AMGEN-US077284

PATIENT
  Sex: Male

DRUGS (6)
  1. ENBREL [Suspect]
     Indication: DRUG USE FOR UNKNOWN INDICATION
     Route: 058
     Dates: start: 20040101, end: 20040501
  2. AZATHIOPRINE [Suspect]
     Route: 048
     Dates: start: 20011001
  3. PREDNISOLONE [Concomitant]
     Dates: start: 19990101
  4. HYDROXYCHLOROQUINE SULFATE [Concomitant]
     Dates: start: 19991109
  5. RISEDRONATE SODIUM [Concomitant]
     Dates: start: 20010618
  6. RAMIPRIL [Concomitant]

REACTIONS (1)
  - SQUAMOUS CELL CARCINOMA OF SKIN [None]
